FAERS Safety Report 21363107 (Version 5)
Quarter: 2024Q1

REPORT INFORMATION
  Report Type: Spontaneous
  Country: JP (occurrence: JP)
  Receive Date: 20220922
  Receipt Date: 20240308
  Transmission Date: 20240409
  Serious: Yes (Death, Other)
  Sender: FDA-Public Use
  Company Number: JP-ASTELLAS-2022JP014036

PATIENT
  Age: 8 Decade
  Sex: Female

DRUGS (4)
  1. XOSPATA [Interacting]
     Active Substance: GILTERITINIB
     Indication: Acute myeloid leukaemia
     Route: 048
     Dates: start: 20220815, end: 20220829
  2. XOSPATA [Interacting]
     Active Substance: GILTERITINIB
     Route: 048
     Dates: start: 20221011
  3. VENETOCLAX [Interacting]
     Active Substance: VENETOCLAX
     Indication: Product used for unknown indication
     Dosage: UNK UNK, UNKNOWN FREQ.
     Route: 065
  4. AZACITIDINE [Interacting]
     Active Substance: AZACITIDINE
     Indication: Product used for unknown indication
     Dosage: UNK UNK, UNKNOWN FREQ.
     Route: 065

REACTIONS (5)
  - Myelosuppression [Recovered/Resolved]
  - Abdominal discomfort [Recovering/Resolving]
  - Cerebral haemorrhage [Fatal]
  - Drug interaction [Unknown]
  - Product use issue [Recovered/Resolved]

NARRATIVE: CASE EVENT DATE: 20220801
